FAERS Safety Report 21618790 (Version 1)
Quarter: 2022Q4

REPORT INFORMATION
  Report Type: Spontaneous
  Country: US (occurrence: US)
  Receive Date: 20221119
  Receipt Date: 20221119
  Transmission Date: 20230113
  Serious: No
  Sender: FDA-Public Use
  Company Number: USCollegium2022-000483

PATIENT

DRUGS (1)
  1. BELBUCA [Suspect]
     Active Substance: BUPRENORPHINE HYDROCHLORIDE
     Indication: Pain
     Dosage: 750 MICROGRAM, UNKNOWN
     Route: 002

REACTIONS (3)
  - Pain [Unknown]
  - Product solubility abnormal [Unknown]
  - Product adhesion issue [Unknown]
